FAERS Safety Report 15140284 (Version 1)
Quarter: 2018Q3

REPORT INFORMATION
  Report Type: Spontaneous
  Country: JP (occurrence: JP)
  Receive Date: 20180713
  Receipt Date: 20180713
  Transmission Date: 20181010
  Serious: Yes (Hospitalization)
  Sender: FDA-Public Use
  Company Number: JP-BAYER-2018-132183

PATIENT
  Age: 39 Year
  Sex: Male
  Weight: 62.7 kg

DRUGS (6)
  1. REMICADE [Concomitant]
     Active Substance: INFLIXIMAB
     Dosage: UNK UNK, Q8WK
  2. CEFTERAM PIVOXIL [Concomitant]
     Active Substance: CEFTERAM PIVOXIL
     Dosage: DAILY DOSE 600 MG
  3. BAYASPIRIN 100 MG [Suspect]
     Active Substance: ASPIRIN
     Dosage: UNK, QD
     Route: 048
  4. WARFARIN POTASSIUM [Concomitant]
     Active Substance: WARFARIN POTASSIUM
     Dosage: DAILY DOSE 6 MG
  5. PRASUGREL. [Concomitant]
     Active Substance: PRASUGREL
  6. POLAPREZINC [Concomitant]
     Active Substance: POLAPREZINC
     Dosage: DAILY DOSE 150 MG

REACTIONS (1)
  - Coronary artery thrombosis [Recovered/Resolved]
